FAERS Safety Report 11673991 (Version 1)
Quarter: 2015Q4

REPORT INFORMATION
  Report Type: Spontaneous
  Country: US (occurrence: US)
  Receive Date: 20151027
  Receipt Date: 20151027
  Transmission Date: 20160304
  Serious: No
  Sender: FDA-Public Use
  Company Number: US-ELI_LILLY_AND_COMPANY-US201001003686

PATIENT
  Sex: Female

DRUGS (6)
  1. FORTEO [Suspect]
     Active Substance: TERIPARATIDE
     Indication: OSTEOPOROSIS
     Dosage: 20 UG, DAILY (1/D)
  2. ZOLOFT [Concomitant]
     Active Substance: SERTRALINE HYDROCHLORIDE
  3. WELLBUTRIN [Concomitant]
     Active Substance: BUPROPION HYDROCHLORIDE
  4. FORTEO [Suspect]
     Active Substance: TERIPARATIDE
     Dosage: 20 UG, DAILY (1/D)
  5. KLONOPIN [Concomitant]
     Active Substance: CLONAZEPAM
  6. FORTEO [Suspect]
     Active Substance: TERIPARATIDE
     Dosage: 20 UG, DAILY (1/D)

REACTIONS (11)
  - Dry eye [Unknown]
  - General physical condition abnormal [Unknown]
  - Cataract [Unknown]
  - Eye pain [Unknown]
  - Eye pruritus [Unknown]
  - Eyelid disorder [Unknown]
  - Eye disorder [Unknown]
  - Eye swelling [Not Recovered/Not Resolved]
  - Visual acuity reduced [Unknown]
  - Vision blurred [Unknown]
  - Eye irritation [Unknown]
